FAERS Safety Report 21563736 (Version 2)
Quarter: 2022Q4

REPORT INFORMATION
  Report Type: Report from Study
  Country: US (occurrence: US)
  Receive Date: 20221108
  Receipt Date: 20221202
  Transmission Date: 20230113
  Serious: Yes (Other)
  Sender: FDA-Public Use
  Company Number: US-002147023-NVSC2022US248603

PATIENT
  Age: 53 Year
  Sex: Male

DRUGS (2)
  1. ENTRESTO [Suspect]
     Active Substance: SACUBITRIL\VALSARTAN
     Indication: Product used for unknown indication
     Dosage: 1 DOSAGE FORM, BID (24/26 MG)
     Route: 048
     Dates: start: 2020
  2. LASIX [Suspect]
     Active Substance: FUROSEMIDE
     Indication: Oedema peripheral
     Dosage: UNK
     Route: 065

REACTIONS (9)
  - Type 2 diabetes mellitus [Unknown]
  - Oedema peripheral [Recovering/Resolving]
  - Localised oedema [Unknown]
  - Blood triglycerides decreased [Recovering/Resolving]
  - Ejection fraction decreased [Recovering/Resolving]
  - Weight increased [Unknown]
  - Arthralgia [Recovering/Resolving]
  - Product availability issue [Unknown]
  - Product dose omission issue [Unknown]

NARRATIVE: CASE EVENT DATE: 20220401
